FAERS Safety Report 24396543 (Version 1)
Quarter: 2024Q4

REPORT INFORMATION
  Report Type: Spontaneous
  Country: JP (occurrence: JP)
  Receive Date: 20241004
  Receipt Date: 20241004
  Transmission Date: 20250115
  Serious: Yes (Death, Other)
  Sender: GENMAB
  Company Number: JP-GENMAB-2024-03560

PATIENT
  Age: 79 Year
  Sex: Female

DRUGS (2)
  1. EPKINLY [Suspect]
     Active Substance: EPCORITAMAB-BYSP
     Indication: Follicular lymphoma
     Dosage: UNK, ADMINISTERED FOR SIX COURSES IN TOTAL
     Route: 065
     Dates: start: 202401, end: 2024
  2. GLOBULIN [Concomitant]
     Dosage: UNK, PERIODIC REPLACEMENT

REACTIONS (1)
  - Follicular lymphoma [Fatal]

NARRATIVE: CASE EVENT DATE: 20240601
